FAERS Safety Report 8494546 (Version 2)
Quarter: 2016Q3

REPORT INFORMATION
  Report Type: Report from Study
  Country: US (occurrence: US)
  Receive Date: 20120404
  Receipt Date: 20160809
  Transmission Date: 20161109
  Serious: Yes (Death, Other)
  Sender: FDA-Public Use
  Company Number: US-ROCHE-782041

PATIENT
  Age: 58 Year
  Sex: Female
  Weight: 74 kg

DRUGS (3)
  1. VISMODEGIB [Suspect]
     Active Substance: VISMODEGIB
     Indication: ENDOMETRIAL CANCER
     Dosage: FREQUNCY: UID/QD?LAST DOSE RECEIVED ON 13/MAY/2011
     Route: 048
  2. GEMCITABINE [Suspect]
     Active Substance: GEMCITABINE\GEMCITABINE HYDROCHLORIDE
     Indication: ENDOMETRIAL CANCER
     Dosage: FREQUENCY: CYCLIC
     Route: 042
     Dates: start: 20110415, end: 20110429
  3. ERLOTINIB [Suspect]
     Active Substance: ERLOTINIB
     Indication: ENDOMETRIAL CANCER
     Dosage: FREQUENCY: UID/ QD?LAST DOSE RECEIVED ION 13/MAY/2011
     Route: 048

REACTIONS (5)
  - Neoplasm [Fatal]
  - Embolism [Unknown]
  - Embolism [Unknown]
  - Hyponatraemia [Unknown]
  - Blood alkaline phosphatase increased [Unknown]

NARRATIVE: CASE EVENT DATE: 20110516
